FAERS Safety Report 4658304-3 (Version None)
Quarter: 2005Q2

REPORT INFORMATION
  Report Type: 
  Country: None (occurrence: None)
  Receive Date: 20050509
  Receipt Date: 20050429
  Transmission Date: 20051028
  Serious: Yes (Hospitalization)
  Sender: FDA-Public Use
  Company Number: DEWYE477204MAR05

PATIENT
  Age: 72 Year
  Sex: Female

DRUGS (8)
  1. TREVILOR                    (VENLAFAXINE HYDROCHLORIDE ) [Suspect]
     Dosage: 37.5 MG DAILY; SEE IMAGE
     Route: 048
     Dates: start: 20040721, end: 20040723
  2. TREVILOR                    (VENLAFAXINE HYDROCHLORIDE ) [Suspect]
     Dosage: 37.5 MG DAILY; SEE IMAGE
     Route: 048
     Dates: start: 20040724, end: 20040726
  3. TREVILOR                    (VENLAFAXINE HYDROCHLORIDE ) [Suspect]
     Dosage: 37.5 MG DAILY; SEE IMAGE
     Route: 048
     Dates: start: 20040727, end: 20040731
  4. TREVILOR                    (VENLAFAXINE HYDROCHLORIDE ) [Suspect]
     Dosage: 37.5 MG DAILY; SEE IMAGE
     Route: 048
     Dates: start: 20040801, end: 20040801
  5. BELOC ZOK                       (METOPROLOL SUCCINAT) [Suspect]
     Dosage: 95 MG DAILY
     Route: 048
  6. DISALUNIL           (HYDROCHLOROTHIAZIDE) [Suspect]
     Dosage: 25 MG DAILY
     Route: 048
  7. ENALAPRIL MALEATE [Suspect]
     Dosage: 2.5MG DAILY
     Route: 048
  8. OXAZEPAM [Concomitant]

REACTIONS (6)
  - AGITATION [None]
  - DELUSION [None]
  - DRUG INTERACTION [None]
  - DRUG LEVEL INCREASED [None]
  - HYPOKALAEMIA [None]
  - HYPONATRAEMIA [None]
